FAERS Safety Report 19426497 (Version 1)
Quarter: 2021Q2

REPORT INFORMATION
  Report Type: Spontaneous
  Country: US (occurrence: US)
  Receive Date: 20210617
  Receipt Date: 20210617
  Transmission Date: 20210717
  Serious: No
  Sender: FDA-Public Use
  Company Number: US-AUROBINDO-AUR-APL-2020-052584

PATIENT
  Age: 50 Year
  Sex: Female

DRUGS (1)
  1. CIPROFLOXACIN TABLETS USP 500 MG [Suspect]
     Active Substance: CIPROFLOXACIN
     Indication: URINARY TRACT INFECTION
     Dosage: 1 DOSAGE FORM, TWO TIMES A DAY
     Route: 048
     Dates: start: 20200803, end: 202008

REACTIONS (4)
  - Taste disorder [Not Recovered/Not Resolved]
  - Weight decreased [Not Recovered/Not Resolved]
  - Eating disorder [Not Recovered/Not Resolved]
  - Parosmia [Not Recovered/Not Resolved]

NARRATIVE: CASE EVENT DATE: 20200803
